FAERS Safety Report 25769539 (Version 2)
Quarter: 2025Q3

REPORT INFORMATION
  Report Type: Spontaneous
  Country: CN (occurrence: CN)
  Receive Date: 20250906
  Receipt Date: 20250923
  Transmission Date: 20251020
  Serious: Yes (Disabling, Other)
  Sender: MACLEODS
  Company Number: CN-MACLEODS PHARMA-MAC2025055057

PATIENT

DRUGS (1)
  1. TRIAMCINOLONE [Suspect]
     Active Substance: TRIAMCINOLONE
     Indication: Dermatitis allergic
     Route: 058

REACTIONS (3)
  - Retinal artery embolism [Recovered/Resolved]
  - Retinal oedema [Recovered/Resolved]
  - Product administration error [Recovered/Resolved]
